FAERS Safety Report 7506750-2 (Version None)
Quarter: 2011Q2

REPORT INFORMATION
  Report Type: 
  Country: None (occurrence: None)
  Receive Date: 20110526
  Receipt Date: 20110520
  Transmission Date: 20111010
  Serious: Yes (Death, Life-Threatening, Hospitalization)
  Sender: FDA-Public Use
  Company Number: FR-BAYER-201040660GPV

PATIENT
  Age: 75 Year
  Sex: Male
  Weight: 53 kg

DRUGS (9)
  1. SORAFENIB (RAF KINASE INHIBITOR) [Suspect]
     Indication: HEPATIC NEOPLASM MALIGNANT
     Route: 048
     Dates: start: 20100819, end: 20100923
  2. ALFUZOSIN HYDROCHLORIDE [Concomitant]
     Indication: BENIGN PROSTATIC HYPERPLASIA
     Dosage: 10 MG (DAILY DOSE), , ORAL
     Route: 048
     Dates: start: 19900101, end: 20101019
  3. LOPERAMIDE [Concomitant]
     Indication: DIARRHOEA
     Route: 048
     Dates: start: 20100812
  4. ZOCOR [Concomitant]
     Indication: DYSLIPIDAEMIA
     Dosage: 20 MG (DAILY DOSE), , ORAL
     Route: 048
     Dates: start: 19900101
  5. SORAFENIB (RAF KINASE INHIBITOR) [Suspect]
     Dosage: CYCLE 6
  6. ERLOTINIB HYDROCHLORIDE [Suspect]
     Dosage: CYCLE 6
  7. FENOFIBRATE [Concomitant]
     Indication: DYSLIPIDAEMIA
     Dosage: 300 MG (DAILY DOSE), , ORAL
     Route: 048
     Dates: start: 20100706
  8. ERLOTINIB HYDROCHLORIDE [Suspect]
     Indication: HEPATIC NEOPLASM MALIGNANT
     Dosage: 150 MG (DAILY DOSE), QD, ORAL
     Route: 048
     Dates: start: 20100819, end: 20100923
  9. VALSARTAN [Concomitant]
     Indication: HYPERTENSION
     Dosage: 40 MG (DAILY DOSE), , ORAL
     Route: 048
     Dates: start: 20050101, end: 20101019

REACTIONS (4)
  - DYSURIA [None]
  - RENAL FAILURE [None]
  - GENERAL PHYSICAL HEALTH DETERIORATION [None]
  - GASTRIC PERFORATION [None]
